FAERS Safety Report 9282437 (Version 1)
Quarter: 2013Q2

REPORT INFORMATION
  Report Type: Spontaneous
  Country: US (occurrence: None)
  Receive Date: 20130509
  Receipt Date: 20130509
  Transmission Date: 20140414
  Serious: Yes (Hospitalization)
  Sender: FDA-Public Use
  Company Number: None

PATIENT
  Age: 64 Year
  Sex: Female
  Weight: 117.3 kg

DRUGS (1)
  1. TAXOL (PACLITAXEL) [Suspect]

REACTIONS (3)
  - Neutrophil count decreased [None]
  - Urinary tract infection [None]
  - Body temperature increased [None]
